FAERS Safety Report 17657149 (Version 1)
Quarter: 2020Q2

REPORT INFORMATION
  Report Type: Report from Study
  Country: US (occurrence: US)
  Receive Date: 20200410
  Receipt Date: 20200410
  Transmission Date: 20200713
  Serious: Yes (Hospitalization, Other)
  Sender: FDA-Public Use
  Company Number: US-GILEAD-2020-0458583

PATIENT
  Age: 36 Year
  Sex: Male

DRUGS (1)
  1. AZTREONAM LYSINE [Suspect]
     Active Substance: AZTREONAM LYSINE
     Indication: PRODUCT USED FOR UNKNOWN INDICATION
     Dosage: 1 DOSAGE FORM, TID FOR 28 DAYS ON AND 28 DAYS OFF
     Route: 055

REACTIONS (2)
  - Cystic fibrosis [Not Recovered/Not Resolved]
  - Central venous catheterisation [Unknown]
